FAERS Safety Report 17389663 (Version 2)
Quarter: 2020Q2

REPORT INFORMATION
  Report Type: Spontaneous
  Country: AT (occurrence: AT)
  Receive Date: 20200207
  Receipt Date: 20200508
  Transmission Date: 20200713
  Serious: Yes (Other)
  Sender: FDA-Public Use
  Company Number: AT-PFIZER INC-2020049520

PATIENT
  Sex: Male
  Weight: 99 kg

DRUGS (16)
  1. EXFORGE [Suspect]
     Active Substance: AMLODIPINE BESYLATE\VALSARTAN
     Dosage: 1 DF, 1X/DAY
  2. DILTIAZEM. [Concomitant]
     Active Substance: DILTIAZEM
     Indication: BLOOD PRESSURE INCREASED
     Dosage: UNK
  3. PANTOPRAZOLE SODIUM. [Suspect]
     Active Substance: PANTOPRAZOLE SODIUM
     Dosage: 1 DF, 1X/DAY
  4. EUTHYROX [Concomitant]
     Active Substance: LEVOTHYROXINE SODIUM
     Dosage: 1 DF, WEEKLY
  5. VITAMINS WITH MINERALS [Concomitant]
     Active Substance: MINERALS\VITAMINS
     Dosage: 1 DF, 1X/DAY
  6. APREDNISLON [Concomitant]
     Active Substance: PREDNISOLONE
     Dosage: UNK
  7. MIRANAX [NAPROXEN SODIUM] [Concomitant]
     Dosage: UNK
  8. VALSARTAN SANDOZ [Suspect]
     Active Substance: VALSARTAN
     Dosage: 1 DF, 1X/DAY (IN THE MORNING)
  9. ATORVASTATIN CALCIUM. [Suspect]
     Active Substance: ATORVASTATIN CALCIUM
     Dosage: UNK
  10. DIOVAN [Suspect]
     Active Substance: VALSARTAN
     Indication: HYPERTENSION
     Dosage: 160 MG, 2X/DAY
  11. THYREX [Suspect]
     Active Substance: LEVOTHYROXINE SODIUM
     Dosage: UNK
  12. EUTHYROX [Concomitant]
     Active Substance: LEVOTHYROXINE SODIUM
     Dosage: 1 DF, 1X/DAY (FOR 6 DAYS/WEEK)
  13. RENNIE SPEARMINT [Concomitant]
     Dosage: UNK
  14. PREDNISOLONE. [Concomitant]
     Active Substance: PREDNISOLONE
     Dosage: UNK UNK, 1X/DAY (1/4-0-0)
  15. DIOVAN [Suspect]
     Active Substance: VALSARTAN
     Dosage: 1 DF, 1X/DAY (IN THE MORNING)
  16. NITROLINGUAL [Concomitant]
     Active Substance: NITROGLYCERIN
     Dosage: UNK

REACTIONS (38)
  - Pruritus [Unknown]
  - Eructation [Unknown]
  - Chromaturia [Unknown]
  - Dysgeusia [Unknown]
  - Bladder pain [Unknown]
  - Myalgia [Unknown]
  - Chromophobe renal cell carcinoma [Unknown]
  - Seroma [Unknown]
  - Ill-defined disorder [Unknown]
  - Dizziness [Unknown]
  - Dyspepsia [Unknown]
  - Intervertebral disc protrusion [Unknown]
  - Flatulence [Unknown]
  - Hypertension [Unknown]
  - Swollen tongue [Unknown]
  - Cutaneous lupus erythematosus [Unknown]
  - Liver abscess [Unknown]
  - Spinal pain [Unknown]
  - Dysuria [Unknown]
  - Skin lesion [Unknown]
  - Hiatus hernia [Unknown]
  - Neurodermatitis [Unknown]
  - Tachycardia [Unknown]
  - Procedural pain [Unknown]
  - Urinary incontinence [Unknown]
  - Gastritis [Unknown]
  - Hypoacusis [Unknown]
  - Malaise [Unknown]
  - Dyslipidaemia [Unknown]
  - Haematoma [Unknown]
  - Tinnitus [Unknown]
  - Diverticulum intestinal [Unknown]
  - Skin irritation [Unknown]
  - Obesity [Unknown]
  - Cholelithiasis [Unknown]
  - Polyp [Unknown]
  - Nervousness [Unknown]
  - Blister [Unknown]

NARRATIVE: CASE EVENT DATE: 20151010
